FAERS Safety Report 13722235 (Version 1)
Quarter: 2017Q3

REPORT INFORMATION
  Report Type: Spontaneous
  Country: US (occurrence: US)
  Receive Date: 20170706
  Receipt Date: 20170706
  Transmission Date: 20171127
  Serious: Yes (Hospitalization)
  Sender: FDA-Public Use
  Company Number: US-GLAXOSMITHKLINE-US2017101765

PATIENT
  Age: 59 Year
  Sex: Female

DRUGS (9)
  1. ADVAIR DISKUS [Suspect]
     Active Substance: FLUTICASONE PROPIONATE\SALMETEROL XINAFOATE
     Indication: CHRONIC OBSTRUCTIVE PULMONARY DISEASE
  2. VENTOLIN HFA [Suspect]
     Active Substance: ALBUTEROL SULFATE
     Indication: EMPHYSEMA
     Dosage: 1 PUFF(S), PRN
     Route: 055
     Dates: start: 2012
  3. ADVAIR HFA [Suspect]
     Active Substance: FLUTICASONE PROPIONATE\SALMETEROL XINAFOATE
     Indication: IDIOPATHIC PULMONARY FIBROSIS
     Dosage: 1 PUFF(S), BID
     Route: 055
     Dates: start: 2016
  4. ADVAIR DISKUS [Suspect]
     Active Substance: FLUTICASONE PROPIONATE\SALMETEROL XINAFOATE
     Indication: IDIOPATHIC PULMONARY FIBROSIS
  5. ADVAIR HFA [Suspect]
     Active Substance: FLUTICASONE PROPIONATE\SALMETEROL XINAFOATE
     Indication: CHRONIC OBSTRUCTIVE PULMONARY DISEASE
  6. VENTOLIN HFA [Suspect]
     Active Substance: ALBUTEROL SULFATE
     Indication: CHRONIC OBSTRUCTIVE PULMONARY DISEASE
  7. ADVAIR DISKUS [Suspect]
     Active Substance: FLUTICASONE PROPIONATE\SALMETEROL XINAFOATE
     Indication: EMPHYSEMA
     Dosage: 1 PUFF(S), QD
     Route: 055
     Dates: start: 2016, end: 2016
  8. ADVAIR HFA [Suspect]
     Active Substance: FLUTICASONE PROPIONATE\SALMETEROL XINAFOATE
     Indication: EMPHYSEMA
  9. VENTOLIN HFA [Suspect]
     Active Substance: ALBUTEROL SULFATE
     Indication: IDIOPATHIC PULMONARY FIBROSIS

REACTIONS (20)
  - Hypersensitivity [Unknown]
  - Throat tightness [Recovered/Resolved]
  - Oral mucosal eruption [Unknown]
  - Abnormal sensation in eye [Unknown]
  - Blood cholesterol increased [Unknown]
  - Upper-airway cough syndrome [Not Recovered/Not Resolved]
  - Dyspnoea [Recovered/Resolved]
  - Candida infection [Recovered/Resolved]
  - Dysphagia [Recovered/Resolved]
  - Food poisoning [Recovered/Resolved]
  - Sensation of foreign body [Recovered/Resolved]
  - Wound secretion [Recovering/Resolving]
  - Underdose [Unknown]
  - Retching [Recovered/Resolved]
  - Cataract [Not Recovered/Not Resolved]
  - Dysphonia [Recovered/Resolved]
  - Hypophagia [Recovered/Resolved]
  - Arthropod sting [Recovering/Resolving]
  - Wound complication [Recovering/Resolving]
  - Blood iron increased [Unknown]

NARRATIVE: CASE EVENT DATE: 2016
